FAERS Safety Report 23980056 (Version 1)
Quarter: 2024Q2

REPORT INFORMATION
  Report Type: Spontaneous
  Country: CN (occurrence: CN)
  Receive Date: 20240617
  Receipt Date: 20240617
  Transmission Date: 20240716
  Serious: Yes (Hospitalization, Other)
  Sender: FDA-Public Use
  Company Number: None

PATIENT
  Age: 82 Year
  Sex: Male
  Weight: 58.5 kg

DRUGS (3)
  1. CYCLOPHOSPHAMIDE [Suspect]
     Active Substance: CYCLOPHOSPHAMIDE
     Indication: Plasma cell myeloma
     Dosage: 0.4 G (2 A PIECE OF VIALS), ONE TIME IN ONE DAY, AS A PART OF BCD REGIMEN
     Route: 041
     Dates: start: 20240604, end: 20240604
  2. DEXAMETHASONE SODIUM PHOSPHATE [Suspect]
     Active Substance: DEXAMETHASONE PHOSPHATE\DEXAMETHASONE SODIUM PHOSPHATE
     Indication: Plasma cell myeloma
     Dosage: 20 MG (4 A PIECE OF VIALS), ONE TIME IN ONE DAY, AS A PART OF BCD REGIMEN
     Route: 041
     Dates: start: 20240604, end: 20240604
  3. BORTEZOMIB [Suspect]
     Active Substance: BORTEZOMIB
     Indication: Plasma cell myeloma
     Dosage: 1.9 MG (2 A PIECE OF VIALS), ONE TIME IN ONE DAY, AS A PART OF BCD REGIMEN
     Route: 041
     Dates: start: 20240604, end: 20240604

REACTIONS (2)
  - Protein urine present [Unknown]
  - Plasma cell myeloma [Unknown]

NARRATIVE: CASE EVENT DATE: 20240606
